FAERS Safety Report 12381070 (Version 4)
Quarter: 2016Q2

REPORT INFORMATION
  Report Type: Report from Study
  Country: MX (occurrence: MX)
  Receive Date: 20160518
  Receipt Date: 20160629
  Transmission Date: 20160815
  Serious: Yes (Hospitalization)
  Sender: FDA-Public Use
  Company Number: MX-ROCHE-1757146

PATIENT
  Age: 79 Year
  Sex: Female

DRUGS (93)
  1. DEXAMETHASONE. [Concomitant]
     Active Substance: DEXAMETHASONE
     Route: 065
     Dates: start: 20150110, end: 20150110
  2. DEXAMETHASONE. [Concomitant]
     Active Substance: DEXAMETHASONE
     Route: 065
     Dates: start: 20150130, end: 20150130
  3. DEXAMETHASONE. [Concomitant]
     Active Substance: DEXAMETHASONE
     Route: 065
     Dates: start: 20160401, end: 20160401
  4. PARACETAMOL [Concomitant]
     Active Substance: ACETAMINOPHEN
     Indication: FRACTURE
     Route: 065
     Dates: start: 20141010
  5. PARACETAMOL [Concomitant]
     Active Substance: ACETAMINOPHEN
     Indication: PAIN
  6. CHLORPHENIRAMINE. [Concomitant]
     Active Substance: CHLORPHENIRAMINE
     Route: 065
     Dates: start: 20151016, end: 20151016
  7. CHLORPHENIRAMINE. [Concomitant]
     Active Substance: CHLORPHENIRAMINE
     Route: 065
     Dates: start: 20160401, end: 20160401
  8. CHLORPHENIRAMINE. [Concomitant]
     Active Substance: CHLORPHENIRAMINE
     Route: 065
     Dates: start: 20160422, end: 20160422
  9. ONDANSETRON [Concomitant]
     Active Substance: ONDANSETRON
     Route: 065
     Dates: start: 20140815, end: 20140815
  10. CHLOROPYRAMINE [Concomitant]
     Active Substance: CHLOROPYRAMINE
     Route: 065
     Dates: start: 20141018, end: 20141018
  11. DEXAMETHASONE. [Concomitant]
     Active Substance: DEXAMETHASONE
     Route: 065
     Dates: start: 20150220, end: 20150220
  12. DEXAMETHASONE. [Concomitant]
     Active Substance: DEXAMETHASONE
     Route: 065
     Dates: start: 20151218, end: 20151218
  13. CHLORPHENIRAMINE. [Concomitant]
     Active Substance: CHLORPHENIRAMINE
     Route: 065
     Dates: start: 20150904, end: 20150904
  14. CHLORPHENIRAMINE. [Concomitant]
     Active Substance: CHLORPHENIRAMINE
     Route: 065
     Dates: start: 20160311, end: 20160311
  15. CHLORPHENIRAMINE. [Concomitant]
     Active Substance: CHLORPHENIRAMINE
     Route: 065
     Dates: start: 20150703, end: 20150703
  16. LYSINE CLONIXINATE [Concomitant]
     Route: 065
     Dates: start: 20160513
  17. CHLOROPYRAMINE [Concomitant]
     Active Substance: CHLOROPYRAMINE
     Route: 065
     Dates: start: 20141107, end: 20141107
  18. CHLOROPYRAMINE [Concomitant]
     Active Substance: CHLOROPYRAMINE
     Route: 065
     Dates: start: 20141130, end: 20141130
  19. CHLOROPYRAMINE [Concomitant]
     Active Substance: CHLOROPYRAMINE
     Route: 065
     Dates: start: 20150703, end: 20150703
  20. DOCETAXEL. [Suspect]
     Active Substance: DOCETAXEL
     Indication: HER-2 POSITIVE BREAST CANCER
     Dosage: DATE OF MOST RECENT DOSE PRIOR TO SAE: 27/SEP/2014
     Route: 042
     Dates: start: 20140729
  21. DEXAMETHASONE. [Concomitant]
     Active Substance: DEXAMETHASONE
     Route: 065
     Dates: start: 20150318, end: 20150318
  22. DEXAMETHASONE. [Concomitant]
     Active Substance: DEXAMETHASONE
     Route: 065
     Dates: start: 20150407, end: 20150407
  23. CHLORPHENIRAMINE. [Concomitant]
     Active Substance: CHLORPHENIRAMINE
     Route: 065
     Dates: start: 20150814, end: 20150814
  24. CHLORPHENIRAMINE. [Concomitant]
     Active Substance: CHLORPHENIRAMINE
     Route: 065
     Dates: start: 20141130, end: 20141130
  25. ONDANSETRON [Concomitant]
     Active Substance: ONDANSETRON
     Indication: VOMITING
     Route: 065
     Dates: start: 20140729, end: 20140729
  26. CHLOROPYRAMINE [Concomitant]
     Active Substance: CHLOROPYRAMINE
     Route: 065
     Dates: start: 20141220, end: 20141220
  27. PERTUZUMAB [Suspect]
     Active Substance: PERTUZUMAB
     Dosage: DATE OF MOST RECENT DOSE PRIOR TO SAE: 22/APR/2016?MAINTAINANCE DOSE.
     Route: 042
     Dates: start: 20140818
  28. TRASTUZUMAB [Suspect]
     Active Substance: TRASTUZUMAB
     Indication: HER-2 POSITIVE BREAST CANCER
     Dosage: LOADING DOSE
     Route: 042
     Dates: start: 20140729
  29. TRASTUZUMAB [Suspect]
     Active Substance: TRASTUZUMAB
     Dosage: DATE OF MOST RECENT DOSE PRIOR TO SAE: 22/APR/2016?MAINTAINANCE DOSE.
     Route: 042
     Dates: start: 20140819
  30. DEXAMETHASONE. [Concomitant]
     Active Substance: DEXAMETHASONE
     Route: 065
     Dates: start: 20140905, end: 20140905
  31. DEXAMETHASONE. [Concomitant]
     Active Substance: DEXAMETHASONE
     Route: 065
     Dates: start: 20150522, end: 20150522
  32. DEXAMETHASONE. [Concomitant]
     Active Substance: DEXAMETHASONE
     Route: 065
     Dates: start: 20150904, end: 20150904
  33. DEXAMETHASONE. [Concomitant]
     Active Substance: DEXAMETHASONE
     Route: 065
     Dates: start: 20151106, end: 20151106
  34. AMLODIPINE [Concomitant]
     Active Substance: AMLODIPINE BESYLATE
     Route: 065
     Dates: start: 200901
  35. CHLORPHENIRAMINE. [Concomitant]
     Active Substance: CHLORPHENIRAMINE
     Route: 065
     Dates: start: 20160219, end: 20160219
  36. CHLORPHENIRAMINE. [Concomitant]
     Active Substance: CHLORPHENIRAMINE
     Route: 065
     Dates: start: 20150220, end: 20150220
  37. CHLORPHENIRAMINE. [Concomitant]
     Active Substance: CHLORPHENIRAMINE
     Route: 065
     Dates: start: 20141220, end: 20141220
  38. CHLORPHENIRAMINE. [Concomitant]
     Active Substance: CHLORPHENIRAMINE
     Route: 065
     Dates: start: 20150130, end: 20150130
  39. CHLOROPYRAMINE [Concomitant]
     Active Substance: CHLOROPYRAMINE
     Indication: HYPERSENSITIVITY
     Route: 065
     Dates: start: 20140729, end: 20140729
  40. CHLOROPYRAMINE [Concomitant]
     Active Substance: CHLOROPYRAMINE
     Route: 065
     Dates: start: 20150501, end: 20150501
  41. DEXAMETHASONE. [Concomitant]
     Active Substance: DEXAMETHASONE
     Indication: VOMITING
     Route: 065
     Dates: start: 20140729, end: 20140729
  42. DEXAMETHASONE. [Concomitant]
     Active Substance: DEXAMETHASONE
     Route: 065
     Dates: start: 20141018, end: 20141018
  43. DEXAMETHASONE. [Concomitant]
     Active Substance: DEXAMETHASONE
     Route: 065
     Dates: start: 20150814, end: 20150814
  44. DEXAMETHASONE. [Concomitant]
     Active Substance: DEXAMETHASONE
     Route: 065
     Dates: start: 20150925, end: 20150925
  45. CEFALEXINA [Concomitant]
     Indication: INFECTION
     Route: 065
     Dates: start: 20141010
  46. CHLORPHENIRAMINE. [Concomitant]
     Active Substance: CHLORPHENIRAMINE
     Route: 065
     Dates: start: 20150925, end: 20150925
  47. CHLORPHENIRAMINE. [Concomitant]
     Active Substance: CHLORPHENIRAMINE
     Route: 065
     Dates: start: 20151106, end: 20151106
  48. CHLORPHENIRAMINE. [Concomitant]
     Active Substance: CHLORPHENIRAMINE
     Route: 065
     Dates: start: 20151218, end: 20151218
  49. CHLORPHENIRAMINE. [Concomitant]
     Active Substance: CHLORPHENIRAMINE
     Route: 065
     Dates: start: 20160129, end: 20160129
  50. CHLOROPYRAMINE [Concomitant]
     Active Substance: CHLOROPYRAMINE
     Route: 065
     Dates: start: 20150130, end: 20150130
  51. DEXAMETHASONE. [Concomitant]
     Active Substance: DEXAMETHASONE
     Route: 065
     Dates: start: 20140815, end: 20140815
  52. DEXAMETHASONE. [Concomitant]
     Active Substance: DEXAMETHASONE
     Route: 065
     Dates: start: 20150501, end: 20150501
  53. DEXAMETHASONE. [Concomitant]
     Active Substance: DEXAMETHASONE
     Route: 065
     Dates: start: 20150724, end: 20150724
  54. DEXAMETHASONE. [Concomitant]
     Active Substance: DEXAMETHASONE
     Route: 065
     Dates: start: 20151126, end: 20151126
  55. DEXAMETHASONE. [Concomitant]
     Active Substance: DEXAMETHASONE
     Route: 065
     Dates: start: 20160219, end: 20160219
  56. DEXAMETHASONE. [Concomitant]
     Active Substance: DEXAMETHASONE
     Route: 065
     Dates: start: 20160422, end: 20160422
  57. CHLORPHENIRAMINE. [Concomitant]
     Active Substance: CHLORPHENIRAMINE
     Indication: HYPERSENSITIVITY
     Route: 065
     Dates: start: 20150724, end: 20150724
  58. CHLORPHENIRAMINE. [Concomitant]
     Active Substance: CHLORPHENIRAMINE
     Route: 065
     Dates: start: 20151126, end: 20151126
  59. CHLORPHENIRAMINE. [Concomitant]
     Active Substance: CHLORPHENIRAMINE
     Route: 065
     Dates: start: 20141018, end: 20141018
  60. ONDANSETRON [Concomitant]
     Active Substance: ONDANSETRON
     Route: 065
     Dates: start: 20141018, end: 20141018
  61. CHLOROPYRAMINE [Concomitant]
     Active Substance: CHLOROPYRAMINE
     Route: 065
     Dates: start: 20140927, end: 20140927
  62. CHLOROPYRAMINE [Concomitant]
     Active Substance: CHLOROPYRAMINE
     Route: 065
     Dates: start: 20150318, end: 20150318
  63. PERTUZUMAB [Suspect]
     Active Substance: PERTUZUMAB
     Indication: HER-2 POSITIVE BREAST CANCER
     Dosage: LOADING DOSE. LAST DOSE PRIOR TO SERIOUS ADVERSE EVENT.
     Route: 042
     Dates: start: 20140728
  64. DEXAMETHASONE. [Concomitant]
     Active Substance: DEXAMETHASONE
     Route: 065
     Dates: start: 20140927, end: 20140927
  65. DEXAMETHASONE. [Concomitant]
     Active Substance: DEXAMETHASONE
     Route: 065
     Dates: start: 20141130, end: 20141130
  66. DEXAMETHASONE. [Concomitant]
     Active Substance: DEXAMETHASONE
     Route: 065
     Dates: start: 20141220, end: 20141220
  67. DEXAMETHASONE. [Concomitant]
     Active Substance: DEXAMETHASONE
     Route: 065
     Dates: start: 20151016, end: 20151016
  68. DEXAMETHASONE. [Concomitant]
     Active Substance: DEXAMETHASONE
     Route: 065
     Dates: start: 20160129, end: 20160129
  69. DEXAMETHASONE. [Concomitant]
     Active Substance: DEXAMETHASONE
     Route: 065
     Dates: start: 20160311, end: 20160311
  70. CHLORPHENIRAMINE. [Concomitant]
     Active Substance: CHLORPHENIRAMINE
     Route: 065
     Dates: start: 20150501, end: 20150501
  71. ONDANSETRON [Concomitant]
     Active Substance: ONDANSETRON
     Route: 065
     Dates: start: 20140905, end: 20140905
  72. CHLOROPYRAMINE [Concomitant]
     Active Substance: CHLOROPYRAMINE
     Route: 065
     Dates: start: 20150110, end: 20150110
  73. CHLOROPYRAMINE [Concomitant]
     Active Substance: CHLOROPYRAMINE
     Route: 065
     Dates: start: 20150220, end: 20150220
  74. CHLOROPYRAMINE [Concomitant]
     Active Substance: CHLOROPYRAMINE
     Route: 065
     Dates: start: 20150407, end: 20150407
  75. CHLOROPYRAMINE [Concomitant]
     Active Substance: CHLOROPYRAMINE
     Route: 065
     Dates: start: 20150522, end: 20150522
  76. DEXAMETHASONE. [Concomitant]
     Active Substance: DEXAMETHASONE
     Route: 065
     Dates: start: 20150615, end: 20150615
  77. DEXAMETHASONE. [Concomitant]
     Active Substance: DEXAMETHASONE
     Route: 065
     Dates: start: 20150703, end: 20150703
  78. DEXAMETHASONE. [Concomitant]
     Active Substance: DEXAMETHASONE
     Route: 065
     Dates: start: 20160108, end: 20160108
  79. DEXAMETHASONE. [Concomitant]
     Active Substance: DEXAMETHASONE
     Route: 065
     Dates: start: 20141107, end: 20141107
  80. TRAMADOL. [Concomitant]
     Active Substance: TRAMADOL
     Indication: FRACTURE
     Route: 065
     Dates: start: 20141010
  81. TRAMADOL. [Concomitant]
     Active Substance: TRAMADOL
     Indication: PAIN
  82. CHLORPHENIRAMINE. [Concomitant]
     Active Substance: CHLORPHENIRAMINE
     Route: 065
     Dates: start: 20160108, end: 20160108
  83. CHLORPHENIRAMINE. [Concomitant]
     Active Substance: CHLORPHENIRAMINE
     Route: 065
     Dates: start: 20150615, end: 20150615
  84. CHLORPHENIRAMINE. [Concomitant]
     Active Substance: CHLORPHENIRAMINE
     Route: 065
     Dates: start: 20150318, end: 20150318
  85. CHLORPHENIRAMINE. [Concomitant]
     Active Substance: CHLORPHENIRAMINE
     Route: 065
     Dates: start: 20150407, end: 20150407
  86. CHLORPHENIRAMINE. [Concomitant]
     Active Substance: CHLORPHENIRAMINE
     Route: 065
     Dates: start: 20150522, end: 20150522
  87. CHLORPHENIRAMINE. [Concomitant]
     Active Substance: CHLORPHENIRAMINE
     Route: 065
     Dates: start: 20150110, end: 20150110
  88. ANASTROZOLE. [Concomitant]
     Active Substance: ANASTROZOLE
     Indication: NEOPLASM MALIGNANT
     Route: 065
     Dates: start: 20150130
  89. FEXOFENADINA [Concomitant]
     Indication: HYPERSENSITIVITY
     Route: 065
     Dates: start: 20140728, end: 20140728
  90. ONDANSETRON [Concomitant]
     Active Substance: ONDANSETRON
     Route: 065
     Dates: start: 20140927, end: 20140927
  91. CHLOROPYRAMINE [Concomitant]
     Active Substance: CHLOROPYRAMINE
     Route: 065
     Dates: start: 20140815, end: 20140815
  92. CHLOROPYRAMINE [Concomitant]
     Active Substance: CHLOROPYRAMINE
     Route: 065
     Dates: start: 20140905, end: 20140905
  93. CHLOROPYRAMINE [Concomitant]
     Active Substance: CHLOROPYRAMINE
     Route: 065
     Dates: start: 20150615, end: 20150615

REACTIONS (2)
  - Extradural abscess [Recovered/Resolved]
  - Urinary tract infection [Recovered/Resolved]

NARRATIVE: CASE EVENT DATE: 20160510
